FAERS Safety Report 26069813 (Version 1)
Quarter: 2025Q4

REPORT INFORMATION
  Report Type: Spontaneous
  Country: US (occurrence: US)
  Receive Date: 20251120
  Receipt Date: 20251120
  Transmission Date: 20260119
  Serious: No
  Sender: CATALYST PHARMA
  Company Number: US-CATALYST PHARMACEUTICALS-US-CATA-25-01310

PATIENT
  Sex: Male
  Weight: 34.467 kg

DRUGS (22)
  1. AGAMREE [Suspect]
     Active Substance: VAMOROLONE
     Indication: Duchenne muscular dystrophy
     Dosage: 4.2 ML DAILY
     Route: 048
     Dates: start: 20240912, end: 2024
  2. AGAMREE [Suspect]
     Active Substance: VAMOROLONE
     Dosage: 2.7 ML DAILY
     Route: 048
     Dates: start: 20241003
  3. AGAMREE [Suspect]
     Active Substance: VAMOROLONE
     Dosage: 3.2 ML ONCE DAILY
     Route: 048
     Dates: start: 20250213
  4. ALENDRONATE [Concomitant]
     Active Substance: ALENDRONATE SODIUM
     Indication: Osteoporosis
     Dosage: 35 MG ONCE WEEKLY
     Route: 065
  5. CALCIUM [Concomitant]
     Active Substance: CALCIUM
     Indication: Osteoporosis
     Dosage: 600 MG DAILY
     Route: 065
  6. CHILDREN CLARITIN ALLERGY [Concomitant]
     Active Substance: LORATADINE
     Indication: Hypersensitivity
     Dosage: 5 MG AS NEEDED
     Route: 065
  7. COENZYME Q10 [Concomitant]
     Active Substance: DIETARY SUPPLEMENT\UBIDECARENONE
     Indication: Duchenne muscular dystrophy
     Dosage: 200 MG DAILY
     Route: 065
  8. FISH OIL [Concomitant]
     Active Substance: FISH OIL
     Indication: Cardiovascular event prophylaxis
     Dosage: 1000 MG DAILY
     Route: 065
  9. MAGNESIUM [Concomitant]
     Active Substance: MAGNESIUM
     Indication: Hypovitaminosis
     Dosage: 400 MG DAILY
     Route: 065
  10. VITAMIN D3 [Concomitant]
     Active Substance: CHOLECALCIFEROL
     Indication: Osteoporosis
     Dosage: 50 MCG
     Route: 065
  11. FLINTSTONES MULTIVITAMIN [Concomitant]
     Indication: Hypovitaminosis
     Dosage: ONE TABLET DAILY
     Route: 065
  12. HYDROCORTISONE [Concomitant]
     Active Substance: HYDROCORTISONE
     Indication: Steroid therapy
     Dosage: 10 MG AS NEEDED
     Route: 065
  13. IBUPROFEN [Concomitant]
     Active Substance: IBUPROFEN
     Indication: Pain
     Dosage: 100 MG AS NEEDED
     Route: 065
  14. IBUPROFEN [Concomitant]
     Active Substance: IBUPROFEN
     Indication: Pyrexia
  15. LISINOPRIL [Concomitant]
     Active Substance: LISINOPRIL
     Indication: Cardiovascular event prophylaxis
     Dosage: 5 MG DAILY
     Route: 065
  16. MIRALAX [Concomitant]
     Active Substance: POLYETHYLENE GLYCOL 3350
     Indication: Constipation
     Dosage: 17 G AS NEEDED
     Route: 065
  17. NORDITROPIN [Concomitant]
     Active Substance: SOMATROPIN
     Indication: Short stature
     Dosage: 1 ML DAILY
     Route: 065
  18. SENNA [Concomitant]
     Active Substance: SENNOSIDES
     Indication: Constipation
     Dosage: 15 MG DAILY
     Route: 065
  19. SOLU-CORTEF [Concomitant]
     Active Substance: HYDROCORTISONE SODIUM SUCCINATE
     Indication: Steroid therapy
     Dosage: 100 MG AS NEEDED
     Route: 065
  20. SPIRONOLACTONE [Concomitant]
     Active Substance: SPIRONOLACTONE
     Indication: Cardiovascular event prophylaxis
     Dosage: 12.5 MG DAILY
     Route: 065
  21. TYLENOL [Concomitant]
     Active Substance: ACETAMINOPHEN
     Indication: Pain
     Dosage: 160 MG AS NEEDED
     Route: 065
  22. TYLENOL [Concomitant]
     Active Substance: ACETAMINOPHEN
     Indication: Pyrexia

REACTIONS (1)
  - Weight increased [Not Recovered/Not Resolved]

NARRATIVE: CASE EVENT DATE: 20240101
